FAERS Safety Report 8561459 (Version 6)
Quarter: 2013Q4

REPORT INFORMATION
  Report Type: Spontaneous
  Country: PL (occurrence: PL)
  Receive Date: 20120515
  Receipt Date: 20131119
  Transmission Date: 20140711
  Serious: Yes (Other)
  Sender: FDA-Public Use
  Company Number: PHHY2012PL038184

PATIENT
  Age: 3 Year
  Sex: Male

DRUGS (19)
  1. CICLOSPORIN [Suspect]
     Indication: PROPHYLAXIS AGAINST GRAFT VERSUS HOST DISEASE
  2. DEXAMETHASONE [Suspect]
     Dosage: 20 MG/M2, UNK
  3. VINCRISTINE [Suspect]
     Dosage: 1.5 MG/M2, UNK
  4. CYTARABINE [Suspect]
     Dosage: 150 MG/M2, BID
  5. METHOTREXATE [Suspect]
  6. IFOSFAMIDE [Suspect]
     Dosage: 400 MG/M2, QD
  7. IFOSFAMIDE [Suspect]
     Dosage: 400 MG/M2, BID
  8. METHYLPREDNISOLONE [Suspect]
     Indication: PROPHYLAXIS AGAINST GRAFT VERSUS HOST DISEASE
  9. PREDNISONE [Suspect]
  10. CYCLOPHOSPHAMIDE [Suspect]
     Dosage: 100 MG/M2, QD
  11. CYCLOPHOSPHAMIDE [Suspect]
     Dosage: 100 MG/M2, BID
  12. VINDESINE [Suspect]
     Dosage: 3 MG/M2, UNK
  13. DAUNORUBICIN [Suspect]
     Dosage: 30 MG/M2, UNK
  14. VEPESID [Suspect]
  15. L ASPARAGINASE [Concomitant]
     Dosage: 25000 UG/M2, UNK
  16. BUSILVEX [Concomitant]
     Indication: ACUTE LYMPHOCYTIC LEUKAEMIA
     Dosage: 0.5 MG/KG, BID
     Route: 042
  17. FLUDARABINE [Concomitant]
     Indication: ACUTE LYMPHOCYTIC LEUKAEMIA
     Dosage: 30 MG/M2, DAILY FROM DAY -8 TO -4 (TOTAL DOSE 150 MG/M2)
     Route: 042
  18. ATG-FRESENIUS [Concomitant]
     Indication: ACUTE LYMPHOCYTIC LEUKAEMIA
     Dosage: 20 MG/KG, DAILY
     Route: 042
  19. OKT 3 [Concomitant]
     Indication: PROPHYLAXIS AGAINST GRAFT VERSUS HOST DISEASE

REACTIONS (8)
  - Post transplant lymphoproliferative disorder [Recovered/Resolved]
  - BK virus infection [Recovered/Resolved]
  - Adenovirus infection [Recovered/Resolved]
  - Viral haemorrhagic cystitis [Recovered/Resolved]
  - Leukopenia [Recovered/Resolved]
  - Agranulocytosis [Recovered/Resolved]
  - Mucosal inflammation [Recovered/Resolved]
  - Drug effect incomplete [Unknown]
